FAERS Safety Report 13496900 (Version 1)
Quarter: 2017Q2

REPORT INFORMATION
  Report Type: Spontaneous
  Country: BR (occurrence: BR)
  Receive Date: 20170428
  Receipt Date: 20170428
  Transmission Date: 20170830
  Serious: Yes (Other)
  Sender: FDA-Public Use
  Company Number: BR-DSJP-DSJ-2010-10353

PATIENT

DRUGS (1)
  1. OLMESARTAN MEDOXOMIL; HYDROCHLOROTHIAZIDE [Suspect]
     Active Substance: HYDROCHLOROTHIAZIDE\OLMESARTAN MEDOXOMIL
     Indication: HYPERTENSION
     Dosage: 40/12,5 MG, QD
     Route: 048
     Dates: start: 2006

REACTIONS (10)
  - Blood pressure fluctuation [Recovered/Resolved]
  - Nephrogenic anaemia [Recovered/Resolved]
  - Fibula fracture [Recovered/Resolved]
  - Renal impairment [Recovering/Resolving]
  - Weight increased [Recovered/Resolved]
  - Oedema peripheral [Recovered/Resolved]
  - Hypothyroidism [Recovered/Resolved]
  - Drug ineffective [Recovered/Resolved]
  - Arthropathy [Recovered/Resolved]
  - Tibia fracture [Recovered/Resolved]

NARRATIVE: CASE EVENT DATE: 2008
